FAERS Safety Report 14087625 (Version 1)
Quarter: 2017Q4

REPORT INFORMATION
  Report Type: Spontaneous
  Country: US (occurrence: NZ)
  Receive Date: 20171013
  Receipt Date: 20171013
  Transmission Date: 20180321
  Serious: Yes (Other)
  Sender: FDA-Public Use
  Company Number: US-ALLERGAN-1757445US

PATIENT
  Age: 46 Year
  Sex: Female

DRUGS (1)
  1. BOTULINUM TOXIN TYPE A UNK [Suspect]
     Active Substance: BOTULINUM TOXIN TYPE A
     Indication: OESOPHAGEAL ACHALASIA
     Dosage: 100 UNITS, SINGLE
     Route: 065

REACTIONS (4)
  - Liver abscess [Recovered/Resolved]
  - Oesophageal infection [Recovered/Resolved]
  - Mediastinitis [Recovered/Resolved]
  - Off label use [Unknown]
